FAERS Safety Report 18061468 (Version 2)
Quarter: 2020Q3

REPORT INFORMATION
  Report Type: Spontaneous
  Country: FR (occurrence: FR)
  Receive Date: 20200723
  Receipt Date: 20200819
  Transmission Date: 20201103
  Serious: Yes (Hospitalization)
  Sender: FDA-Public Use
  Company Number: FR-ROCHE-2646379

PATIENT
  Sex: Male
  Weight: 120 kg

DRUGS (2)
  1. VALIUM [Suspect]
     Active Substance: DIAZEPAM
     Indication: PSYCHOTIC DISORDER
     Route: 065
  2. RISPERDAL [Suspect]
     Active Substance: RISPERIDONE
     Indication: PSYCHOTIC DISORDER
     Route: 048

REACTIONS (9)
  - Dysuria [Unknown]
  - Tremor [Unknown]
  - Gastric cyst [Unknown]
  - Decreased appetite [Unknown]
  - Polydipsia [Unknown]
  - Insomnia [Unknown]
  - Libido disorder [Unknown]
  - Obstruction [Unknown]
  - Weight increased [Unknown]
